FAERS Safety Report 7115957-8 (Version None)
Quarter: 2010Q4

REPORT INFORMATION
  Report Type: 
  Country: None (occurrence: None)
  Receive Date: 20101122
  Receipt Date: 20101110
  Transmission Date: 20110411
  Serious: Yes (Other)
  Sender: FDA-Public Use
  Company Number: US-SANOFI-AVENTIS-2010SA068376

PATIENT
  Age: 74 Year
  Sex: Male

DRUGS (9)
  1. MULTAQ [Suspect]
     Indication: ATRIAL FIBRILLATION
     Route: 048
     Dates: start: 20100201
  2. WARFARIN [Concomitant]
  3. CARVEDILOL [Concomitant]
  4. BENICAR [Concomitant]
  5. VITAMIN D [Concomitant]
     Dosage: DOSE:2000 UNIT(S)
  6. LOVAZA [Concomitant]
  7. ASCORBIC ACID [Concomitant]
     Dosage: DOSE:1000 UNIT(S)
  8. ASPIRIN [Concomitant]
  9. METOPROLOL TARTRATE [Concomitant]

REACTIONS (1)
  - ATRIAL FIBRILLATION [None]
